FAERS Safety Report 9033136 (Version 1)
Quarter: 2013Q1

REPORT INFORMATION
  Report Type: Spontaneous
  Country: US (occurrence: US)
  Receive Date: 20130128
  Receipt Date: 20130128
  Transmission Date: 20140127
  Serious: Yes (Other)
  Sender: FDA-Public Use
  Company Number: US-ROCHE-1027751

PATIENT
  Sex: Female
  Weight: 53.57 kg

DRUGS (2)
  1. ACCUTANE [Suspect]
     Indication: ACNE
     Route: 065
     Dates: start: 199301, end: 199312
  2. ACCUTANE [Suspect]
     Route: 065
     Dates: end: 199401

REACTIONS (7)
  - Crohn^s disease [Unknown]
  - Depression [Unknown]
  - Mental disorder [Unknown]
  - Bipolar disorder [Unknown]
  - Suicidal ideation [Unknown]
  - Intestinal obstruction [Unknown]
  - Intestinal haemorrhage [Unknown]
